FAERS Safety Report 16845873 (Version 7)
Quarter: 2023Q1

REPORT INFORMATION
  Report Type: Spontaneous
  Country: US (occurrence: US)
  Receive Date: 20190924
  Receipt Date: 20230126
  Transmission Date: 20230417
  Serious: No
  Sender: FDA-Public Use
  Company Number: US-CATALYST PHARMACEUTICALS, INC-2019CAT00271

PATIENT
  Sex: Male
  Weight: 106.58 kg

DRUGS (25)
  1. FIRDAPSE [Suspect]
     Active Substance: AMIFAMPRIDINE PHOSPHATE
     Indication: Myasthenic syndrome
     Dosage: 10 MG, 1X/DAY
     Route: 048
     Dates: start: 201906, end: 2019
  2. FIRDAPSE [Suspect]
     Active Substance: AMIFAMPRIDINE PHOSPHATE
     Dosage: 10 MG, 6 TO 7 TIMES PER DAY
     Route: 048
     Dates: start: 201901, end: 201906
  3. FIRDAPSE [Suspect]
     Active Substance: AMIFAMPRIDINE PHOSPHATE
     Dosage: 10 TO 20 MG PER DAY AS NEEDED; WAITS 36 HOURS BETWEEN KLONOPIN AND FIRDAPSE
     Route: 048
     Dates: start: 2022
  4. FIRDAPSE [Suspect]
     Active Substance: AMIFAMPRIDINE PHOSPHATE
     Dosage: 1 TABLET (10 MG), 2X/DAY AS NEEDED IF GOING TO GO OUT OF THE HOUSE
     Route: 048
  5. FIRDAPSE [Suspect]
     Active Substance: AMIFAMPRIDINE PHOSPHATE
     Dosage: 10 MG, 7X/DAY
     Route: 048
     Dates: start: 202201, end: 202202
  6. FIRDAPSE [Suspect]
     Active Substance: AMIFAMPRIDINE PHOSPHATE
     Dosage: 10 MG, AS NEEDED
     Route: 048
     Dates: start: 2021, end: 202201
  7. FIRDAPSE [Suspect]
     Active Substance: AMIFAMPRIDINE PHOSPHATE
     Dosage: 10 MG, 7X/DAY (UP TO)
     Route: 048
     Dates: end: 2021
  8. FIRDAPSE [Suspect]
     Active Substance: AMIFAMPRIDINE PHOSPHATE
     Dosage: 10 MG TO 20 MG, 5 TO 7 A DAY
     Route: 048
     Dates: end: 2021
  9. FIRDAPSE [Suspect]
     Active Substance: AMIFAMPRIDINE PHOSPHATE
     Dosage: 10 MG, 1X/DAY
     Route: 048
     Dates: start: 2021, end: 202201
  10. FIRDAPSE [Suspect]
     Active Substance: AMIFAMPRIDINE PHOSPHATE
     Dosage: 40 - 50 MG PER DAY
     Route: 048
     Dates: start: 201901, end: 201906
  11. FIRDAPSE [Suspect]
     Active Substance: AMIFAMPRIDINE PHOSPHATE
     Dosage: 10 MG, 2X/WEEK
     Route: 048
     Dates: start: 2019, end: 202006
  12. FIRDAPSE [Suspect]
     Active Substance: AMIFAMPRIDINE PHOSPHATE
     Dosage: 10 MG, 2X/DAY
     Route: 048
  13. FIRDAPSE [Suspect]
     Active Substance: AMIFAMPRIDINE PHOSPHATE
     Dosage: 10 MG, 1-2 TIMES DAILY
     Route: 048
     Dates: start: 202007
  14. FIRDAPSE [Suspect]
     Active Substance: AMIFAMPRIDINE PHOSPHATE
     Dosage: 10-20 MG EVERY 4 HOURS (NO MORE THAN 80 MG DAILY); ABOUT 70 MG A DAY
     Route: 048
     Dates: start: 202201, end: 202202
  15. FIRDAPSE [Suspect]
     Active Substance: AMIFAMPRIDINE PHOSPHATE
     Dosage: 10-20 MG, 1X/DAY (10 MG A DAY AND 10 MG IF HE IS GOING OUT THAT DAY)
     Route: 048
     Dates: start: 202202, end: 2022
  16. FIRDAPSE [Suspect]
     Active Substance: AMIFAMPRIDINE PHOSPHATE
     Dosage: 10 MG, 1X/DAY
     Route: 048
     Dates: start: 202202, end: 2022
  17. FIRDAPSE [Suspect]
     Active Substance: AMIFAMPRIDINE PHOSPHATE
     Dosage: 10 MG, AS NEEDED
     Route: 048
     Dates: start: 202202, end: 2022
  18. KLONOPIN [Suspect]
     Active Substance: CLONAZEPAM
     Dosage: 1 MG, AS NEEDED; WAITS 36 HOURS BETWEEN KLONOPIN AND FIRDAPSE
  19. PFIZER-BIONTECH COVID-19 VACCINE [Suspect]
     Active Substance: TOZINAMERAN
  20. CHOLESTEROL MEDICATION, STATIN [Concomitant]
  21. OMEPRAZOLE [Concomitant]
     Active Substance: OMEPRAZOLE
  22. PAXIL CR [Concomitant]
     Active Substance: PAROXETINE HYDROCHLORIDE
  23. PLAVIX [Concomitant]
     Active Substance: CLOPIDOGREL BISULFATE
  24. SUMATRIPTAN SUCCINATE [Concomitant]
     Active Substance: SUMATRIPTAN SUCCINATE
  25. ROSUVASTATIN [Concomitant]
     Active Substance: ROSUVASTATIN

REACTIONS (7)
  - Hepatic enzyme increased [Not Recovered/Not Resolved]
  - Nasopharyngitis [Recovered/Resolved]
  - Pyrexia [Recovered/Resolved]
  - Unevaluable event [Recovered/Resolved]
  - Abdominal pain upper [Recovered/Resolved]
  - Feeling abnormal [Recovered/Resolved]
  - Hepatic pain [Unknown]

NARRATIVE: CASE EVENT DATE: 20190101
